FAERS Safety Report 15267993 (Version 1)
Quarter: 2018Q3

REPORT INFORMATION
  Report Type: Spontaneous
  Country: US (occurrence: US)
  Receive Date: 20180725
  Receipt Date: 20180725
  Transmission Date: 20181010
  Serious: No
  Sender: FDA-Public Use
  Company Number: None

PATIENT
  Age: 77 Year
  Sex: Female

DRUGS (1)
  1. RYTARY [Suspect]
     Active Substance: CARBIDOPA\LEVODOPA
     Indication: PARKINSON^S DISEASE
     Route: 048
     Dates: start: 20180113, end: 20180625

REACTIONS (9)
  - Dizziness [None]
  - Balance disorder [None]
  - Dyspnoea [None]
  - Insomnia [None]
  - Anxiety [None]
  - Decreased appetite [None]
  - Weight decreased [None]
  - Respiratory rate increased [None]
  - Chest discomfort [None]
